FAERS Safety Report 25025216 (Version 3)
Quarter: 2025Q1

REPORT INFORMATION
  Report Type: Report from Study
  Country: CN (occurrence: CN)
  Receive Date: 20250228
  Receipt Date: 20250320
  Transmission Date: 20250409
  Serious: Yes (Death, Hospitalization)
  Sender: NOVARTIS
  Company Number: CN-002147023-NVSC2025CN034676

PATIENT
  Age: 58 Year
  Sex: Female
  Weight: 43 kg

DRUGS (15)
  1. SANDOSTATIN LAR DEPOT [Suspect]
     Active Substance: OCTREOTIDE ACETATE
     Indication: Neuroendocrine tumour
     Dosage: 60 MG, Q4W (INJECTION 30MG)
     Route: 041
     Dates: start: 20230706, end: 20230828
  2. SANDOSTATIN LAR DEPOT [Suspect]
     Active Substance: OCTREOTIDE ACETATE
  3. SANDOSTATIN LAR DEPOT [Suspect]
     Active Substance: OCTREOTIDE ACETATE
  4. DENOSUMAB [Concomitant]
     Active Substance: DENOSUMAB
     Indication: Metastases to bone
     Dosage: 120 MG, Q4W
     Route: 058
     Dates: start: 20230706
  5. CALCITRIOL [Concomitant]
     Active Substance: CALCITRIOL
     Indication: Mineral supplementation
     Dosage: 0.25 UG, QD
     Route: 048
     Dates: start: 20230828
  6. PANTOPRAZOLE SODIUM [Concomitant]
     Active Substance: PANTOPRAZOLE SODIUM
     Indication: Abdominal pain upper
     Route: 065
     Dates: start: 20230726, end: 20230730
  7. PANTOPRAZOLE SODIUM [Concomitant]
     Active Substance: PANTOPRAZOLE SODIUM
     Dosage: 80 MG, QD
     Route: 042
     Dates: start: 20230726, end: 20230730
  8. PANTOPRAZOLE SODIUM [Concomitant]
     Active Substance: PANTOPRAZOLE SODIUM
     Dosage: 80 MG, QD
     Route: 042
     Dates: start: 20230824, end: 20230827
  9. PANTOPRAZOLE SODIUM [Concomitant]
     Active Substance: PANTOPRAZOLE SODIUM
     Route: 042
     Dates: start: 202309, end: 202309
  10. Raceanisodamine hydrochloride [Concomitant]
     Indication: Abdominal pain upper
     Route: 065
     Dates: start: 20230726, end: 20230730
  11. CEFTEZOLE [Concomitant]
     Active Substance: CEFTEZOLE
     Indication: Antiinflammatory therapy
     Dosage: 2 G, QD
     Route: 042
     Dates: start: 20230824, end: 20230827
  12. VITAMIN B6 [Concomitant]
     Active Substance: PYRIDOXINE HYDROCHLORIDE
     Indication: Nausea
     Route: 065
     Dates: start: 202309, end: 202309
  13. ANISODAMINE [Concomitant]
     Active Substance: ANISODAMINE
     Indication: Abdominal pain
     Route: 065
     Dates: start: 202309, end: 202309
  14. FENTANYL [Concomitant]
     Active Substance: FENTANYL
     Indication: Back pain
     Route: 065
     Dates: start: 202309, end: 202309
  15. MORPHINE [Concomitant]
     Active Substance: MORPHINE
     Indication: Back pain
     Route: 065
     Dates: start: 20230905, end: 202309

REACTIONS (10)
  - Neuroendocrine tumour [Fatal]
  - Malignant neoplasm progression [Fatal]
  - Type 2 diabetes mellitus [Not Recovered/Not Resolved]
  - Diabetes mellitus inadequate control [Not Recovered/Not Resolved]
  - Decreased appetite [Not Recovered/Not Resolved]
  - Abdominal distension [Not Recovered/Not Resolved]
  - Abdominal pain [Not Recovered/Not Resolved]
  - Asthenia [Not Recovered/Not Resolved]
  - Back pain [Not Recovered/Not Resolved]
  - Blood glucose increased [Recovering/Resolving]

NARRATIVE: CASE EVENT DATE: 20230803
